FAERS Safety Report 18752772 (Version 2)
Quarter: 2021Q3

REPORT INFORMATION
  Report Type: Spontaneous
  Country: CA (occurrence: CA)
  Receive Date: 20210118
  Receipt Date: 20210709
  Transmission Date: 20211014
  Serious: Yes (Hospitalization, Other)
  Sender: FDA-Public Use
  Company Number: CA-PURDUE-USA-2020-0198062

PATIENT
  Sex: Male

DRUGS (2)
  1. MORPHINE SULFATE. [Suspect]
     Active Substance: MORPHINE SULFATE
     Indication: PRODUCT USED FOR UNKNOWN INDICATION
     Dosage: 30 MG, UNK
     Route: 065
  2. MS CONTIN [Suspect]
     Active Substance: MORPHINE SULFATE
     Indication: BACK PAIN
     Dosage: UNKNOWN
     Route: 048

REACTIONS (13)
  - Irritability [Unknown]
  - Fall [Unknown]
  - Mental impairment [Unknown]
  - Depression [Unknown]
  - Asthenia [Unknown]
  - Overdose [Unknown]
  - Renal failure [Unknown]
  - Subdural haematoma [Unknown]
  - Loss of consciousness [Unknown]
  - Brain injury [Unknown]
  - Drug dependence [Unknown]
  - Drug abuse [None]
  - Anxiety [Unknown]
